FAERS Safety Report 13664100 (Version 1)
Quarter: 2017Q2

REPORT INFORMATION
  Report Type: Spontaneous
  Country: US (occurrence: US)
  Receive Date: 20170618
  Receipt Date: 20170618
  Transmission Date: 20170830
  Serious: No
  Sender: FDA-Public Use
  Company Number: None

PATIENT
  Age: 36 Year
  Sex: Female
  Weight: 135 kg

DRUGS (5)
  1. LOSARTAN. [Concomitant]
     Active Substance: LOSARTAN
  2. DIAZEPAM. [Suspect]
     Active Substance: DIAZEPAM
     Indication: ANXIETY
     Dosage: ?          QUANTITY:6 TABLET(S);?
     Route: 048
     Dates: start: 20100501
  3. DIAZEPAM. [Suspect]
     Active Substance: DIAZEPAM
     Indication: INSOMNIA
     Dosage: ?          QUANTITY:6 TABLET(S);?
     Route: 048
     Dates: start: 20100501
  4. MULTI VITAMIN [Concomitant]
     Active Substance: VITAMINS
  5. CYMBALTA [Concomitant]
     Active Substance: DULOXETINE HYDROCHLORIDE

REACTIONS (14)
  - Psychotic disorder [None]
  - Depression [None]
  - Paranoia [None]
  - Lethargy [None]
  - Insomnia [None]
  - Hypertension [None]
  - Dyspnoea [None]
  - Blunted affect [None]
  - Malaise [None]
  - Suicidal ideation [None]
  - Panic attack [None]
  - Condition aggravated [None]
  - Dizziness [None]
  - Agoraphobia [None]

NARRATIVE: CASE EVENT DATE: 20160501
